FAERS Safety Report 4319180-1 (Version None)
Quarter: 2004Q1

REPORT INFORMATION
  Report Type: 
  Country: None (occurrence: None)
  Receive Date: 20040315
  Receipt Date: 20031125
  Transmission Date: 20041129
  Serious: Yes (Hospitalization)
  Sender: FDA-Public Use
  Company Number: 2003187771US

PATIENT
  Age: 45 Year
  Sex: Male

DRUGS (1)
  1. BEXTRA [Suspect]
     Dosage: 10 MG
     Dates: start: 20031101

REACTIONS (1)
  - CHEST PAIN [None]
